FAERS Safety Report 11052967 (Version 3)
Quarter: 2017Q1

REPORT INFORMATION
  Report Type: Spontaneous
  Country: FR (occurrence: FR)
  Receive Date: 20150417
  Receipt Date: 20170228
  Transmission Date: 20170428
  Serious: Yes (Hospitalization, Other)
  Sender: FDA-Public Use
  Company Number: FR-H14001-15-00554

PATIENT
  Age: 57 Year
  Sex: Male
  Weight: 72.1 kg

DRUGS (10)
  1. ARACYTINE [Suspect]
     Active Substance: CYTARABINE
     Route: 041
     Dates: start: 20100618, end: 20100620
  2. CERUBIDINE [Suspect]
     Active Substance: DAUNORUBICIN HYDROCHLORIDE
     Route: 041
     Dates: start: 20100618, end: 20100619
  3. CERUBIDINE [Suspect]
     Active Substance: DAUNORUBICIN HYDROCHLORIDE
     Route: 041
     Dates: start: 20100913, end: 20100914
  4. ARACYTINE [Suspect]
     Active Substance: CYTARABINE
     Route: 041
     Dates: start: 20100913, end: 20100916
  5. MYLOTARG [Suspect]
     Active Substance: GEMTUZUMAB OZOGAMICIN
     Indication: ACUTE MYELOID LEUKAEMIA
     Route: 041
     Dates: start: 20100603, end: 20100609
  6. CERUBIDINE [Suspect]
     Active Substance: DAUNORUBICIN HYDROCHLORIDE
     Indication: ACUTE MYELOID LEUKAEMIA
     Route: 041
     Dates: start: 20100603, end: 20100606
  7. CERUBIDINE [Suspect]
     Active Substance: DAUNORUBICIN HYDROCHLORIDE
     Route: 041
     Dates: start: 20100726, end: 20100729
  8. ARACYTINE [Suspect]
     Active Substance: CYTARABINE
     Indication: ACUTE MYELOID LEUKAEMIA
     Route: 041
     Dates: start: 20100603, end: 20100609
  9. MYLOTARG [Suspect]
     Active Substance: GEMTUZUMAB OZOGAMICIN
     Route: 041
     Dates: start: 20100726, end: 20100726
  10. ARACYTINE [Suspect]
     Active Substance: CYTARABINE
     Route: 041
     Dates: start: 20100726, end: 20100727

REACTIONS (4)
  - Thrombocytopenia [Unknown]
  - Staphylococcal sepsis [Recovered/Resolved]
  - Pneumonia [Recovering/Resolving]
  - Febrile bone marrow aplasia [Recovered/Resolved]

NARRATIVE: CASE EVENT DATE: 2010
